FAERS Safety Report 8575114-5 (Version None)
Quarter: 2012Q3

REPORT INFORMATION
  Report Type: 
  Country: None (occurrence: None)
  Receive Date: 20120807
  Receipt Date: 20120803
  Transmission Date: 20120928
  Serious: Yes (Hospitalization)
  Sender: FDA-Public Use
  Company Number: US-AMGEN-USASP2012048925

PATIENT
  Age: 61 Year
  Sex: Female

DRUGS (1)
  1. ENBREL [Suspect]
     Indication: RHEUMATOID ARTHRITIS
     Dosage: 50 MG, QWK
     Dates: start: 20070101

REACTIONS (12)
  - BLOOD GLUCOSE INCREASED [None]
  - UPPER RESPIRATORY TRACT INFECTION [None]
  - PAIN [None]
  - MUSCLE SPASMS [None]
  - LUNG INFECTION [None]
  - TENDON RUPTURE [None]
  - HEART RATE INCREASED [None]
  - JOINT SWELLING [None]
  - MUSCLE TIGHTNESS [None]
  - SINUSITIS [None]
  - MUSCLE RUPTURE [None]
  - HERPES ZOSTER [None]
